FAERS Safety Report 7570302-9 (Version None)
Quarter: 2011Q2

REPORT INFORMATION
  Report Type: 
  Country: None (occurrence: None)
  Receive Date: 20110624
  Receipt Date: 20110622
  Transmission Date: 20111010
  Serious: Yes (Death, Hospitalization)
  Sender: FDA-Public Use
  Company Number: US-B.I. PHARMACEUTICALS,INC./RIDGEFIELD-2011-BP-14758BP

PATIENT
  Sex: Female

DRUGS (7)
  1. ALLOPURINOL [Concomitant]
  2. PLAVIX [Concomitant]
  3. ASPIRIN [Concomitant]
  4. PRILOSEC [Concomitant]
  5. TRAMADOL HCL [Concomitant]
  6. PRADAXA [Suspect]
     Indication: ATRIAL FIBRILLATION
  7. LASIX [Concomitant]

REACTIONS (5)
  - INTERNATIONAL NORMALISED RATIO INCREASED [None]
  - CARDIO-RESPIRATORY DISTRESS [None]
  - SEPSIS [None]
  - TOXIC EPIDERMAL NECROLYSIS [None]
  - HAEMORRHAGE [None]
